FAERS Safety Report 7214608-1 (Version None)
Quarter: 2011Q1

REPORT INFORMATION
  Report Type: 
  Country: None (occurrence: None)
  Receive Date: 20110107
  Receipt Date: 20110104
  Transmission Date: 20110831
  Serious: Yes (Other)
  Sender: FDA-Public Use
  Company Number: US-JNJFOC-20100908643

PATIENT
  Sex: Female
  Weight: 67.13 kg

DRUGS (18)
  1. FENTANYL-100 [Suspect]
     Indication: INTERVERTEBRAL DISC DEGENERATION
     Route: 062
  2. FENTANYL-100 [Suspect]
     Indication: RHEUMATOID ARTHRITIS
     Route: 062
  3. BENTYL [Concomitant]
     Indication: GASTROINTESTINAL DISORDER
     Route: 048
  4. MIRALAX [Concomitant]
     Indication: GASTROINTESTINAL DISORDER
     Route: 048
  5. PHENERGAN [Concomitant]
     Indication: GASTROINTESTINAL DISORDER
     Dosage: AS NEEDED
     Route: 054
  6. PHENERGAN [Concomitant]
     Dosage: AS NEEDED
     Route: 048
  7. PROAIR HFA [Concomitant]
     Indication: ASTHMA
     Dosage: AS NEEDED
     Route: 055
  8. SINGULAIR [Concomitant]
     Indication: ASTHMA
     Route: 048
  9. FENTANYL-100 [Suspect]
     Indication: PAIN
     Route: 062
  10. SINGULAIR [Concomitant]
     Indication: MULTIPLE ALLERGIES
     Route: 048
  11. LOMOTIL [Concomitant]
     Indication: GASTROINTESTINAL DISORDER
     Dosage: 2.2/0.025MG/TABLET/2.5/0.025MG/DAILY/ORAL
     Route: 048
  12. SYMBICORT [Concomitant]
     Indication: ASTHMA
     Route: 055
  13. FENTANYL-100 [Suspect]
     Dosage: 75UG + 75 UG
     Route: 062
  14. FENTANYL-100 [Suspect]
     Dosage: 75UG + 75 UG
     Route: 062
  15. DURAGESIC-50 [Suspect]
     Indication: PAIN
     Route: 062
  16. FENTANYL-100 [Suspect]
     Indication: ILL-DEFINED DISORDER
     Route: 062
  17. ALBUTEROL [Concomitant]
     Indication: ASTHMA
     Route: 055
  18. NEXIUM [Concomitant]
     Indication: GASTROOESOPHAGEAL REFLUX DISEASE
     Route: 048

REACTIONS (24)
  - FALL [None]
  - INSOMNIA [None]
  - DERMATITIS CONTACT [None]
  - PRODUCT ADHESION ISSUE [None]
  - MALAISE [None]
  - INFLUENZA [None]
  - WRONG TECHNIQUE IN DRUG USAGE PROCESS [None]
  - TREATMENT NONCOMPLIANCE [None]
  - APPLICATION SITE HAEMATOMA [None]
  - LOSS OF CONSCIOUSNESS [None]
  - VOMITING [None]
  - SPEECH DISORDER [None]
  - TOOTH FRACTURE [None]
  - DYSSTASIA [None]
  - CONFUSIONAL STATE [None]
  - RASH [None]
  - COLD SWEAT [None]
  - MOUTH HAEMORRHAGE [None]
  - HEAD INJURY [None]
  - GINGIVAL DISORDER [None]
  - IRRITABILITY [None]
  - INFECTION [None]
  - HYPERHIDROSIS [None]
  - PYREXIA [None]
